FAERS Safety Report 18659190 (Version 1)
Quarter: 2020Q4

REPORT INFORMATION
  Report Type: Spontaneous
  Country: US (occurrence: US)
  Receive Date: 20201223
  Receipt Date: 20201223
  Transmission Date: 20210114
  Serious: Yes (Hospitalization)
  Sender: FDA-Public Use
  Company Number: None

PATIENT
  Age: 58 Year
  Sex: Female
  Weight: 40.32 kg

DRUGS (11)
  1. DRIPS/IVF [Concomitant]
  2. EPINEPHRINE. [Concomitant]
     Active Substance: EPINEPHRINE
  3. NOREPINEPHRINE. [Concomitant]
     Active Substance: NOREPINEPHRINE
  4. VASOPRESSIN. [Concomitant]
     Active Substance: VASOPRESSIN
  5. FENTANYL. [Concomitant]
     Active Substance: FENTANYL
  6. EVEROLIMUS. [Suspect]
     Active Substance: EVEROLIMUS
  7. FUROSEMIDE. [Concomitant]
     Active Substance: FUROSEMIDE
  8. HEPARIN [Concomitant]
     Active Substance: HEPARIN SODIUM
  9. SODIUM BICARBONATE. [Concomitant]
     Active Substance: SODIUM BICARBONATE
  10. CEMIPLIMAB [Suspect]
     Active Substance: CEMIPLIMAB
     Indication: SQUAMOUS CELL CARCINOMA OF SKIN
     Route: 042
     Dates: start: 20201211, end: 20201211
  11. MIDAZOLAM. [Concomitant]
     Active Substance: MIDAZOLAM

REACTIONS (2)
  - Angioedema [None]
  - Anaphylactic reaction [None]

NARRATIVE: CASE EVENT DATE: 20201222
